FAERS Safety Report 6084997-2 (Version None)
Quarter: 2009Q1

REPORT INFORMATION
  Report Type: 
  Country: None (occurrence: None)
  Receive Date: 20090220
  Receipt Date: 20090213
  Transmission Date: 20090719
  Serious: Yes (Other)
  Sender: FDA-Public Use
  Company Number: US-SOLVAY-00209000829

PATIENT
  Age: 84 Year
  Sex: Female

DRUGS (1)
  1. PROMETRIUM [Suspect]
     Indication: DRUG USE FOR UNKNOWN INDICATION
     Dosage: DAILY DOSE:  UNKNOWN
     Route: 048
     Dates: start: 20070101

REACTIONS (2)
  - LUNG NEOPLASM MALIGNANT [None]
  - ORAL ADMINISTRATION COMPLICATION [None]
